FAERS Safety Report 20175226 (Version 1)
Quarter: 2021Q4

REPORT INFORMATION
  Report Type: Spontaneous
  Country: US (occurrence: US)
  Receive Date: 20211213
  Receipt Date: 20211213
  Transmission Date: 20220303
  Serious: Yes (Other)
  Sender: FDA-Public Use
  Company Number: US-CELGENE-USA-20211201209

PATIENT
  Age: 57 Year
  Sex: Female

DRUGS (4)
  1. AZACITIDINE [Suspect]
     Active Substance: AZACITIDINE
     Indication: Acute myeloid leukaemia
     Route: 042
  2. UNSPECIFIED INGREDIENT [Concomitant]
     Active Substance: UNSPECIFIED INGREDIENT
     Indication: Splenic infarction
     Route: 065
  3. RIVAROXABAN [Concomitant]
     Active Substance: RIVAROXABAN
     Indication: Splenic infarction
     Dosage: 15 MILLIGRAM
     Route: 048
  4. ENOXAPARIN SODIUM [Concomitant]
     Active Substance: ENOXAPARIN SODIUM
     Indication: Splenic infarction
     Dosage: 1.5 MILLIGRAM/KILOGRAM
     Route: 058

REACTIONS (3)
  - Parainfluenzae virus infection [Unknown]
  - Thrombosis [Unknown]
  - Rhinovirus infection [Unknown]
